FAERS Safety Report 5497855-9 (Version None)
Quarter: 2007Q4

REPORT INFORMATION
  Report Type: 
  Country: None (occurrence: None)
  Receive Date: 20071025
  Receipt Date: 20070309
  Transmission Date: 20080405
  Serious: No
  Sender: FDA-Public Use
  Company Number: A0642597A

PATIENT
  Age: 75 Year
  Sex: Male

DRUGS (7)
  1. ADVAIR DISKUS 100/50 [Suspect]
     Indication: ASTHMA
     Dosage: 1PUFF TWICE PER DAY
     Route: 055
     Dates: start: 20040101, end: 20060701
  2. ALTACE [Concomitant]
  3. NORVASC [Concomitant]
  4. AMIODARONE [Concomitant]
  5. ZOCOR [Concomitant]
  6. PRILOSEC [Concomitant]
  7. VITAMIN CAP [Concomitant]

REACTIONS (3)
  - POSTNASAL DRIP [None]
  - PRODUCTIVE COUGH [None]
  - THROAT LESION [None]
